FAERS Safety Report 23603861 (Version 5)
Quarter: 2025Q3

REPORT INFORMATION
  Report Type: Spontaneous
  Country: CA (occurrence: CA)
  Receive Date: 20240307
  Receipt Date: 20250926
  Transmission Date: 20251021
  Serious: Yes (Other)
  Sender: INTERCEPT PHARMACEUTICALS
  Company Number: CA-ADVANZ PHARMA-202402001829

PATIENT
  Age: 56 Year
  Sex: Female

DRUGS (3)
  1. OCALIVA [Suspect]
     Active Substance: OBETICHOLIC ACID
     Indication: Primary biliary cholangitis
     Route: 048
     Dates: start: 20191002
  2. OCALIVA [Suspect]
     Active Substance: OBETICHOLIC ACID
     Route: 048
  3. URSO [Concomitant]
     Active Substance: URSODIOL
     Route: 048
     Dates: start: 201301

REACTIONS (4)
  - Accident [Unknown]
  - Blood alkaline phosphatase abnormal [Unknown]
  - Drug ineffective [Unknown]
  - Therapy cessation [Unknown]

NARRATIVE: CASE EVENT DATE: 20241219
